FAERS Safety Report 5908362-0 (Version None)
Quarter: 2008Q4

REPORT INFORMATION
  Report Type: 
  Country: None (occurrence: None)
  Receive Date: 20081002
  Receipt Date: 20081002
  Transmission Date: 20090506
  Serious: Yes (Hospitalization)
  Sender: FDA-Public Use
  Company Number: None

PATIENT
  Sex: Male

DRUGS (14)
  1. RANIBIZUMAB, LUCENTIS, RHUFAB V2 [Suspect]
     Indication: CHOROIDAL NEOVASCULARISATION
     Dosage: 0.5 MG INTRAVITREAL INJ
     Route: 044
  2. CELEXA [Concomitant]
  3. SYNTHROID [Concomitant]
  4. NORMODYNE [Concomitant]
  5. DIOVAN [Concomitant]
  6. DIGOXIN [Concomitant]
  7. LIPITOR [Concomitant]
  8. NORVASC [Concomitant]
  9. CLONIDINE [Concomitant]
  10. MULTI-VITAMIN [Concomitant]
  11. ANTIOXIDANTS [Concomitant]
  12. LUTEIN [Concomitant]
  13. LOVAZA [Concomitant]
  14. ASPIRIN [Concomitant]

REACTIONS (4)
  - CARDIAC MURMUR [None]
  - DYSPNOEA [None]
  - FATIGUE [None]
  - FEELING ABNORMAL [None]
